FAERS Safety Report 4696601-6 (Version None)
Quarter: 2005Q2

REPORT INFORMATION
  Report Type: 
  Country: None (occurrence: None)
  Receive Date: 20050620
  Receipt Date: 20041208
  Transmission Date: 20051028
  Serious: Yes (Other)
  Sender: FDA-Public Use
  Company Number: 2004194100US

PATIENT
  Age: 73 Year
  Sex: Male

DRUGS (1)
  1. LANTUS [Suspect]
     Dosage: HD

REACTIONS (5)
  - ASTHENIA [None]
  - COLD SWEAT [None]
  - HUNGER [None]
  - HYPOGLYCAEMIA [None]
  - MALAISE [None]
